FAERS Safety Report 8054071-4 (Version None)
Quarter: 2012Q1

REPORT INFORMATION
  Report Type: 
  Country: None (occurrence: None)
  Receive Date: 20120118
  Receipt Date: 20120111
  Transmission Date: 20120608
  Serious: Yes (Hospitalization)
  Sender: FDA-Public Use
  Company Number: US-US-EMD SERONO, INC.-7106604

PATIENT
  Sex: Female

DRUGS (3)
  1. REBIF [Suspect]
     Indication: PRODUCT USED FOR UNKNOWN INDICATION
     Route: 058
     Dates: start: 20100519
  2. CYMBALTA [Concomitant]
     Indication: NEUROPATHY PERIPHERAL
     Dates: end: 20111201
  3. CYMBALTA [Concomitant]
     Dates: start: 20111201

REACTIONS (5)
  - PARAESTHESIA [None]
  - PAIN [None]
  - SINUSITIS [None]
  - NEUROPATHY PERIPHERAL [None]
  - ASTHENIA [None]
